FAERS Safety Report 5808509-0 (Version None)
Quarter: 2008Q3

REPORT INFORMATION
  Report Type: 
  Country: None (occurrence: None)
  Receive Date: 20080714
  Receipt Date: 20080702
  Transmission Date: 20090109
  Serious: Yes (Hospitalization, Disabling)
  Sender: FDA-Public Use
  Company Number: GB-ELI_LILLY_AND_COMPANY-GB200806004995

PATIENT
  Age: 16 Year
  Sex: Male

DRUGS (4)
  1. ZYPREXA [Suspect]
     Indication: PSYCHOTIC DISORDER
     Dosage: UNK, UNKNOWN
     Route: 048
     Dates: start: 20080310, end: 20080331
  2. QUETIAPINE FUMARATE [Concomitant]
     Dosage: 100 MG, 3/D
     Route: 048
  3. CARBAMAZEPINE [Concomitant]
     Indication: BIPOLAR DISORDER
     Dosage: 200 MG, DAILY (1/D)
     Route: 048
  4. LEVOTHYROXINE SODIUM [Concomitant]
     Indication: HYPOTHYROIDISM
     Dosage: 125 UG, DAILY (1/D)
     Route: 048

REACTIONS (3)
  - BLOOD PROLACTIN INCREASED [None]
  - DIABETES MELLITUS [None]
  - ELECTROCARDIOGRAM QT PROLONGED [None]
